FAERS Safety Report 6197321-1 (Version None)
Quarter: 2009Q2

REPORT INFORMATION
  Report Type: 
  Country: None (occurrence: None)
  Receive Date: 20090518
  Receipt Date: 20090505
  Transmission Date: 20091009
  Serious: Yes (Life-Threatening, Hospitalization, Other)
  Sender: FDA-Public Use
  Company Number: 2009AP001833

PATIENT
  Age: 44 Year
  Sex: Female

DRUGS (10)
  1. SOTALOL HCL [Suspect]
     Indication: SUPRAVENTRICULAR TACHYCARDIA
     Dosage: 160 MG;
  2. ALFACALCIDOL (ALFACALCIDOL) [Concomitant]
  3. ASPIRIN [Concomitant]
  4. DOMPERIDONE (DOMPERIDONE) [Concomitant]
  5. DOXAZOSIN MESYLATE [Concomitant]
  6. FUROSEMIDE [Concomitant]
  7. NITROFURANTOIN [Concomitant]
  8. RABEPRAZOLE SODIUM [Concomitant]
  9. SIMVASTATIN [Concomitant]
  10. SODIUM BICARBONATE IN PLASTIC CONTAINER [Concomitant]

REACTIONS (15)
  - ACCIDENTAL OVERDOSE [None]
  - ANXIETY [None]
  - BLOOD GASES ABNORMAL [None]
  - BRADYCARDIA [None]
  - CARDIAC DISORDER [None]
  - CATHETER RELATED COMPLICATION [None]
  - ELECTROCARDIOGRAM QT PROLONGED [None]
  - HAEMODIALYSIS [None]
  - HYPERTENSION [None]
  - HYPOKALAEMIA [None]
  - TACHYARRHYTHMIA [None]
  - TRANSPLANT FAILURE [None]
  - VENTRICULAR EXTRASYSTOLES [None]
  - VENTRICULAR FIBRILLATION [None]
  - VENTRICULAR TACHYCARDIA [None]
